FAERS Safety Report 12767174 (Version 3)
Quarter: 2016Q3

REPORT INFORMATION
  Report Type: Spontaneous
  Country: GB (occurrence: GB)
  Receive Date: 20160921
  Receipt Date: 20160929
  Transmission Date: 20161109
  Serious: Yes (Life-Threatening, Hospitalization, Other)
  Sender: FDA-Public Use
  Company Number: GB-JNJFOC-20160916364

PATIENT
  Age: 61 Year
  Sex: Male

DRUGS (8)
  1. PREDNISOLONE. [Suspect]
     Active Substance: PREDNISOLONE
     Indication: UVEITIS
     Route: 065
  2. AZATHIOPRINE. [Concomitant]
     Active Substance: AZATHIOPRINE
     Indication: UVEITIS
     Route: 065
  3. MYCOPHENOLATE MOFETIL. [Suspect]
     Active Substance: MYCOPHENOLATE MOFETIL
     Indication: IMMUNOSUPPRESSION
     Route: 065
  4. PREDNISOLONE. [Suspect]
     Active Substance: PREDNISOLONE
     Indication: UVEITIS
     Route: 065
  5. TRIAMCINOLONE [Concomitant]
     Active Substance: TRIAMCINOLONE
     Route: 047
  6. INFLIXIMAB, RECOMBINANT [Suspect]
     Active Substance: INFLIXIMAB
     Indication: UVEITIS
     Dosage: AT WEEKS 0, 2, AND 6, AND 8 WEEKLY THEREAFTER
     Route: 042
  7. METHYLPREDNISOLONE. [Concomitant]
     Active Substance: METHYLPREDNISOLONE
     Indication: UVEITIS
     Route: 042
  8. SULFAMETHOXAZOLE [Concomitant]
     Active Substance: SULFAMETHOXAZOLE
     Indication: LYMPHOPENIA
     Route: 065

REACTIONS (7)
  - Off label use [Unknown]
  - Multiple organ dysfunction syndrome [Recovered/Resolved]
  - Intestinal ischaemia [Recovered/Resolved]
  - Pneumonia [Recovered/Resolved]
  - Intestinal obstruction [Recovered/Resolved]
  - Sepsis [Recovered/Resolved]
  - Product use issue [Unknown]
